FAERS Safety Report 18438298 (Version 2)
Quarter: 2021Q3

REPORT INFORMATION
  Report Type: Spontaneous
  Country: US (occurrence: US)
  Receive Date: 20201029
  Receipt Date: 20210707
  Transmission Date: 20211014
  Serious: Yes (Other)
  Sender: FDA-Public Use
  Company Number: US-LUPIN PHARMACEUTICALS INC.-2020-07977

PATIENT
  Age: 68 Year
  Sex: Female

DRUGS (10)
  1. VANCOMYCIN [Suspect]
     Active Substance: VANCOMYCIN
     Indication: ARTHRITIS BACTERIAL
     Dosage: UNK
     Route: 065
  2. METRONIDAZOLE. [Suspect]
     Active Substance: METRONIDAZOLE
     Indication: UREAPLASMA INFECTION
  3. CEFEPIME [Suspect]
     Active Substance: CEFEPIME HYDROCHLORIDE
     Indication: ARTHRITIS BACTERIAL
     Dosage: UNK
     Route: 065
  4. PREDNISONE. [Concomitant]
     Active Substance: PREDNISONE
     Indication: ARTHRALGIA
     Dosage: UNK (ADMINISTERED AT TAPERING DOSES.)
     Route: 016
  5. VANCOMYCIN [Suspect]
     Active Substance: VANCOMYCIN
     Indication: EVIDENCE BASED TREATMENT
  6. CEFEPIME [Suspect]
     Active Substance: CEFEPIME HYDROCHLORIDE
     Indication: UREAPLASMA INFECTION
  7. METRONIDAZOLE. [Suspect]
     Active Substance: METRONIDAZOLE
     Indication: EVIDENCE BASED TREATMENT
  8. VANCOMYCIN [Suspect]
     Active Substance: VANCOMYCIN
     Indication: UREAPLASMA INFECTION
  9. CEFEPIME [Suspect]
     Active Substance: CEFEPIME HYDROCHLORIDE
     Indication: EVIDENCE BASED TREATMENT
  10. METRONIDAZOLE. [Suspect]
     Active Substance: METRONIDAZOLE
     Indication: ARTHRITIS BACTERIAL
     Dosage: UNK
     Route: 065

REACTIONS (1)
  - Drug hypersensitivity [Unknown]
